FAERS Safety Report 11636879 (Version 1)
Quarter: 2015Q4

REPORT INFORMATION
  Report Type: Spontaneous
  Country: US (occurrence: None)
  Receive Date: 20151015
  Receipt Date: 20151015
  Transmission Date: 20160304
  Serious: No
  Sender: FDA-Public Use
  Company Number: None

PATIENT
  Age: 25 Year
  Sex: Male
  Weight: 90.72 kg

DRUGS (2)
  1. AMINOPHYLLINE 2% AMILEAN [Suspect]
     Active Substance: AMINOPHYLLINE
     Indication: FAT TISSUE INCREASED
     Dosage: LOTION TWICE DAILY APPLIED TO A SURFACE, USUALLY THE SKIN
     Route: 061
  2. AMINOPHYLLINE 2% AMILEAN [Suspect]
     Active Substance: AMINOPHYLLINE
     Indication: SKIN DISORDER
     Dosage: LOTION TWICE DAILY APPLIED TO A SURFACE, USUALLY THE SKIN
     Route: 061

REACTIONS (2)
  - Dyspnoea [None]
  - Application site rash [None]

NARRATIVE: CASE EVENT DATE: 20151013
